FAERS Safety Report 9136009 (Version 1)
Quarter: 2013Q1

REPORT INFORMATION
  Report Type: Spontaneous
  Country: US (occurrence: US)
  Receive Date: 20130219
  Receipt Date: 20130219
  Transmission Date: 20140127
  Serious: No
  Sender: FDA-Public Use
  Company Number: US-BRISTOL-MYERS SQUIBB COMPANY-16477432

PATIENT
  Age: 63 Year
  Sex: Female
  Weight: 97 kg

DRUGS (1)
  1. ORENCIA [Suspect]
     Indication: RHEUMATOID ARTHRITIS
     Dosage: IV IN JUL-2010 ?SWITCHED TO SUBQ IN OCT2011 OR NOV2011.
     Route: 058
     Dates: start: 201007, end: 201201

REACTIONS (3)
  - Cough [Recovering/Resolving]
  - Headache [Unknown]
  - Nausea [Unknown]
